FAERS Safety Report 7698707-6 (Version None)
Quarter: 2011Q3

REPORT INFORMATION
  Report Type: 
  Country: None (occurrence: None)
  Receive Date: 20110819
  Receipt Date: 20110809
  Transmission Date: 20111222
  Serious: Yes (Hospitalization, Other)
  Sender: FDA-Public Use
  Company Number: US-BAYER-200935141NA

PATIENT
  Age: 22 Year
  Sex: Female
  Weight: 68.027 kg

DRUGS (8)
  1. NAPROXEN (ALEVE) [Concomitant]
  2. NAPROSYN [Concomitant]
  3. YASMIN [Suspect]
     Dosage: UNK
     Dates: start: 20070101, end: 20080101
  4. IBUPROFEN [Concomitant]
  5. VIRAL VACCINES [Concomitant]
     Dosage: UNK
     Dates: start: 20081204, end: 20081204
  6. YAZ [Suspect]
     Dosage: 1 DF (DAILY DOSE), , ORAL
     Route: 048
     Dates: start: 20070101, end: 20081201
  7. ADVIL LIQUI-GELS [Concomitant]
  8. VIRAL VACCINES [Concomitant]
     Dosage: UNK
     Dates: start: 20081002, end: 20081002

REACTIONS (8)
  - ASTHENIA [None]
  - ANXIETY [None]
  - PULMONARY EMBOLISM [None]
  - DEEP VEIN THROMBOSIS [None]
  - ANHEDONIA [None]
  - PAIN [None]
  - GENERAL PHYSICAL HEALTH DETERIORATION [None]
  - FATIGUE [None]
